FAERS Safety Report 21982041 (Version 1)
Quarter: 2023Q1

REPORT INFORMATION
  Report Type: Spontaneous
  Country: US (occurrence: US)
  Receive Date: 20230213
  Receipt Date: 20230213
  Transmission Date: 20230417
  Serious: No
  Sender: FDA-Public Use
  Company Number: US-TARO PHARMACEUTICALS USA INC.-2022TAR01462

PATIENT

DRUGS (1)
  1. KETOCONAZOLE [Suspect]
     Active Substance: KETOCONAZOLE
     Indication: Neurodermatitis
     Dosage: OD, AT LEAST A TEASPOON, SCALP
     Route: 061
     Dates: start: 202211, end: 202211

REACTIONS (3)
  - Blister [Unknown]
  - Skin hypertrophy [Recovering/Resolving]
  - Product residue present [Unknown]

NARRATIVE: CASE EVENT DATE: 20221101
